FAERS Safety Report 20460149 (Version 1)
Quarter: 2022Q1

REPORT INFORMATION
  Report Type: Report from Study
  Country: US (occurrence: US)
  Receive Date: 20220211
  Receipt Date: 20220211
  Transmission Date: 20220424
  Serious: Yes (Hospitalization)
  Sender: FDA-Public Use
  Company Number: US-JAZZ-2021-US-007728

PATIENT
  Sex: Male
  Weight: 46 kg

DRUGS (13)
  1. ASPARAGINASE ERWINIA CHRYSANTHEMI [Suspect]
     Active Substance: ASPARAGINASE ERWINIA CHRYSANTHEMI
     Indication: Acute lymphocytic leukaemia
     Dosage: 34 MILLIGRAM, 3XWEEKLY PER 2W COURSE
     Route: 042
     Dates: start: 20210419, end: 20210421
  2. ATIVAN [Concomitant]
     Active Substance: LORAZEPAM
     Dosage: 1 MILLIGRAM, Q6 PRN
     Route: 048
     Dates: start: 20210312
  3. FAMOTIDINE [Concomitant]
     Active Substance: FAMOTIDINE
     Dosage: 20 MILLIGRAM, BID PRN
     Route: 048
     Dates: start: 20210222
  4. LIDOCAINE PRILOCAINE BIOGARAN [Concomitant]
     Dosage: 2.5 PERCENT TOPICAL KIT
     Route: 061
     Dates: start: 20210217
  5. MARINOL [Concomitant]
     Active Substance: DRONABINOL
     Dosage: 2.5 MILLIGRAM, BID BEFORE MEALS
     Route: 048
     Dates: start: 20210324
  6. ONDANSETRON [Concomitant]
     Active Substance: ONDANSETRON
     Dosage: 8 MILLIGRAM, Q6 PRN
     Route: 048
     Dates: start: 20210222
  7. ONDANSETRON [Concomitant]
     Active Substance: ONDANSETRON
     Dosage: 8 MILLIGRAM, Q6 PRN
     Route: 048
     Dates: start: 20210414
  8. OXYCODONE [Concomitant]
     Active Substance: OXYCODONE
     Dosage: 5 MILLIGRAM,  Q4 PRN
     Route: 048
     Dates: start: 20210330
  9. SCOPOLAMINE [Concomitant]
     Active Substance: SCOPOLAMINE
     Dosage: 1 MILLIGRAM, Q72 HOURS PRN
     Route: 062
     Dates: start: 20210312
  10. DOCUSATE SODIUM\SENNOSIDE A\SENNOSIDE B [Concomitant]
     Active Substance: DOCUSATE SODIUM\SENNOSIDE A\SENNOSIDE B
     Dosage: 8.6MG-50MG, BID PRN
     Route: 048
     Dates: start: 20210126
  11. VINCRISTINE [Concomitant]
     Active Substance: VINCRISTINE
     Indication: Acute lymphocytic leukaemia
     Dosage: 2 MILLIGRAM PER CHEMO PLAN
     Route: 042
     Dates: start: 20210421
  12. HUMAN RED BLOOD CELL [Concomitant]
     Active Substance: HUMAN RED BLOOD CELL
     Dosage: 1 UNIT X1
     Route: 042
     Dates: start: 20210419, end: 20210419
  13. PLATELETS [Concomitant]
     Active Substance: HUMAN PLATELET, ALLOGENIC
     Dosage: 1 UNIT X1
     Route: 042
     Dates: start: 20210419, end: 20210419

REACTIONS (2)
  - Febrile neutropenia [Recovered/Resolved]
  - Hyperglycaemia [Recovering/Resolving]

NARRATIVE: CASE EVENT DATE: 20210422
